FAERS Safety Report 5357402-9 (Version None)
Quarter: 2007Q2

REPORT INFORMATION
  Report Type: 
  Country: None (occurrence: None)
  Receive Date: 20070612
  Receipt Date: 20070612
  Transmission Date: 20071010
  Serious: Yes (Death)
  Sender: FDA-Public Use
  Company Number: None

PATIENT
  Age: 65 Year
  Sex: Female
  Weight: 70 kg

DRUGS (8)
  1. NOREPINEPHRINE [Suspect]
     Dates: start: 20070407
  2. NOREPINEPHRINE [Suspect]
     Dates: start: 20070409
  3. NOREPINEPHRINE [Suspect]
     Dates: start: 20070411
  4. FACTOR 7 [Suspect]
  5. METRONIDAZOLE [Concomitant]
  6. LACTULOSE [Concomitant]
  7. LANSOPRAZOLE [Concomitant]
  8. PROPHYLACTIC ABX [Concomitant]

REACTIONS (4)
  - ARTERIAL DISORDER [None]
  - GASTROINTESTINAL DISORDER [None]
  - INFARCTION [None]
  - VEIN DISORDER [None]
